FAERS Safety Report 19499252 (Version 2)
Quarter: 2021Q3

REPORT INFORMATION
  Report Type: Report from Study
  Country: DE (occurrence: DE)
  Receive Date: 20210706
  Receipt Date: 20210719
  Transmission Date: 20211014
  Serious: Yes (Hospitalization, Other)
  Sender: FDA-Public Use
  Company Number: DE-TAKEDA-DE201801245

PATIENT
  Age: 60 Year
  Sex: Female
  Weight: 46 kg

DRUGS (16)
  1. TEDUGLUTIDE [Suspect]
     Active Substance: TEDUGLUTIDE
     Indication: SHORT-BOWEL SYNDROME
     Dosage: 0.03 MILLIGRAM/KILOGRAM, QD
     Route: 065
     Dates: start: 20170613, end: 20180509
  2. TEDUGLUTIDE [Suspect]
     Active Substance: TEDUGLUTIDE
     Dosage: 2.2 MILLIGRAM, QD
     Route: 065
     Dates: start: 20180510, end: 201906
  3. BUPRENORPHIN ACINO [Concomitant]
     Active Substance: BUPRENORPHINE
     Indication: PAIN
     Dosage: UNK
     Route: 065
  4. TEDUGLUTIDE [Suspect]
     Active Substance: TEDUGLUTIDE
     Indication: SHORT-BOWEL SYNDROME
     Dosage: 0.03 MILLIGRAM/KILOGRAM, QD
     Route: 065
     Dates: start: 20170613, end: 20180509
  5. COLECALCIFEROL MEDA [Concomitant]
     Indication: VITAMIN D DEFICIENCY
     Dosage: 1000 INTERNATIONAL UNIT, QD
     Route: 048
     Dates: start: 201904
  6. MIRTAZAPINE. [Concomitant]
     Active Substance: MIRTAZAPINE
     Indication: SLEEP DISORDER
     Dosage: 7.50 MILLIGRAM, QD
     Route: 048
     Dates: start: 201810
  7. TEDUGLUTIDE [Suspect]
     Active Substance: TEDUGLUTIDE
     Dosage: 2.2 MILLIGRAM, QD
     Route: 065
     Dates: start: 20180510, end: 201906
  8. TEDUGLUTIDE [Suspect]
     Active Substance: TEDUGLUTIDE
     Dosage: 2.2 MILLIGRAM, QD
     Route: 065
     Dates: start: 20180510, end: 201906
  9. NADROPARIN [Concomitant]
     Active Substance: NADROPARIN
     Indication: THROMBOSIS PROPHYLAXIS
     Dosage: UNK
     Route: 065
  10. PANTOPRAZOLE [Concomitant]
     Active Substance: PANTOPRAZOLE
     Indication: ANTACID THERAPY
     Dosage: UNK
     Route: 065
  11. IMIPRAMIN [Concomitant]
     Active Substance: IMIPRAMINE
     Indication: DEPRESSION
     Dosage: UNK
     Route: 065
  12. TEDUGLUTIDE [Suspect]
     Active Substance: TEDUGLUTIDE
     Indication: SHORT-BOWEL SYNDROME
     Dosage: 0.03 MILLIGRAM/KILOGRAM, QD
     Route: 065
     Dates: start: 20170613, end: 20180509
  13. TEDUGLUTIDE [Suspect]
     Active Substance: TEDUGLUTIDE
     Indication: SHORT-BOWEL SYNDROME
     Dosage: 0.03 MILLIGRAM/KILOGRAM, QD
     Route: 065
     Dates: start: 20170613, end: 20180509
  14. TEDUGLUTIDE [Suspect]
     Active Substance: TEDUGLUTIDE
     Dosage: 2.2 MILLIGRAM, QD
     Route: 065
     Dates: start: 20180510, end: 201906
  15. COLECALCIFEROL MEDA [Concomitant]
     Dosage: 1000 INTERNATIONAL UNIT, QD
     Route: 048
     Dates: start: 201906
  16. CALCIUM [Concomitant]
     Active Substance: CALCIUM
     Indication: CALCIUM DEFICIENCY
     Dosage: 500 MILLIGRAM, QD
     Route: 048
     Dates: start: 201911

REACTIONS (2)
  - Device related infection [Recovered/Resolved with Sequelae]
  - Post procedural complication [Recovered/Resolved]

NARRATIVE: CASE EVENT DATE: 201710
